FAERS Safety Report 19649268 (Version 1)
Quarter: 2021Q3

REPORT INFORMATION
  Report Type: Spontaneous
  Country: US (occurrence: US)
  Receive Date: 20210802
  Receipt Date: 20210802
  Transmission Date: 20211014
  Serious: No
  Sender: FDA-Public Use
  Company Number: US-BAYER-2021-173833

PATIENT
  Sex: Male

DRUGS (2)
  1. ORGOVYX [Concomitant]
     Active Substance: RELUGOLIX
     Dosage: 350 MG
  2. NUBEQA [Suspect]
     Active Substance: DAROLUTAMIDE
     Indication: PROSTATE CANCER
     Dosage: 1200 MG
     Route: 048
     Dates: start: 202102

REACTIONS (3)
  - Fatigue [None]
  - Hyperhidrosis [None]
  - Dizziness [None]
